FAERS Safety Report 10186392 (Version 1)
Quarter: 2014Q2

REPORT INFORMATION
  Report Type: Spontaneous
  Country: US (occurrence: US)
  Receive Date: 20140521
  Receipt Date: 20140521
  Transmission Date: 20141212
  Serious: No
  Sender: FDA-Public Use
  Company Number: US-ASTRAZENECA-2013SE76568

PATIENT
  Sex: Male

DRUGS (2)
  1. PULMICORT RESPULES [Suspect]
     Indication: SINUSITIS
     Dosage: TWO TIMES A DAY
     Route: 055
  2. PULMICORT RESPULES [Suspect]
     Indication: COUGH
     Dosage: TWO TIMES A DAY
     Route: 055

REACTIONS (5)
  - Burning sensation [Unknown]
  - Pain in jaw [Unknown]
  - Nasal discomfort [Unknown]
  - Cough [Unknown]
  - Off label use [Unknown]
